FAERS Safety Report 8507338-7 (Version None)
Quarter: 2012Q3

REPORT INFORMATION
  Report Type: 
  Country: None (occurrence: None)
  Receive Date: 20120712
  Receipt Date: 20120702
  Transmission Date: 20120928
  Serious: Yes (Death)
  Sender: FDA-Public Use
  Company Number: US-BAXTER-2012BAX010111

PATIENT
  Sex: Female

DRUGS (1)
  1. DIANEAL [Suspect]
     Dosage: 6 L
     Route: 033
     Dates: end: 20120623

REACTIONS (1)
  - BLADDER CANCER [None]
